FAERS Safety Report 18321594 (Version 1)
Quarter: 2020Q3

REPORT INFORMATION
  Report Type: Spontaneous
  Country: US (occurrence: US)
  Receive Date: 20200929
  Receipt Date: 20200929
  Transmission Date: 20201103
  Serious: No
  Sender: FDA-Public Use
  Company Number: US-BION-008186

PATIENT
  Sex: Female

DRUGS (1)
  1. ASSURED LOPERAMIDE 2 MG SOFTGEL [Suspect]
     Active Substance: LOPERAMIDE HYDROCHLORIDE
     Indication: DIARRHOEA
     Dosage: DOSE: 2 SOFT GELS AS ONE DOSE DAILY
     Route: 048

REACTIONS (7)
  - Dyspepsia [Unknown]
  - Nausea [Unknown]
  - Incorrect product administration duration [Not Recovered/Not Resolved]
  - Oral discomfort [Unknown]
  - Taste disorder [Unknown]
  - Oesophageal pain [Unknown]
  - Drug ineffective [Not Recovered/Not Resolved]
